FAERS Safety Report 20569927 (Version 1)
Quarter: 2022Q1

REPORT INFORMATION
  Report Type: Spontaneous
  Country: US (occurrence: US)
  Receive Date: 20220309
  Receipt Date: 20220309
  Transmission Date: 20220424
  Serious: Yes (Other)
  Sender: FDA-Public Use
  Company Number: US-GLAXOSMITHKLINE-US2022GSK042281

PATIENT
  Sex: Male

DRUGS (7)
  1. ZANTAC [Suspect]
     Active Substance: RANITIDINE HYDROCHLORIDE
     Indication: Oesophageal ulcer
     Dosage: UNK UNK, QD
     Route: 065
     Dates: start: 201501, end: 201801
  2. ZANTAC [Suspect]
     Active Substance: RANITIDINE HYDROCHLORIDE
     Indication: Oesophageal ulcer
     Dosage: UNK UNK, QD
     Route: 065
     Dates: start: 201501, end: 201801
  3. ZANTAC [Suspect]
     Active Substance: RANITIDINE HYDROCHLORIDE
     Indication: Oesophageal ulcer
     Dosage: UNK UNK, QD
     Route: 065
     Dates: start: 201501, end: 201801
  4. RANITIDINE [Suspect]
     Active Substance: RANITIDINE
     Indication: Oesophageal ulcer
     Dosage: UNK UNK, QD
     Route: 065
     Dates: start: 201501, end: 201801
  5. RANITIDINE [Suspect]
     Active Substance: RANITIDINE
     Indication: Oesophageal ulcer
     Dosage: UNK, QD
     Route: 065
     Dates: start: 201501, end: 201801
  6. RANITIDINE [Suspect]
     Active Substance: RANITIDINE
     Indication: Oesophageal ulcer
     Dosage: UNK, QD
     Route: 065
     Dates: start: 201501, end: 201801
  7. RANITIDINE [Suspect]
     Active Substance: RANITIDINE
     Indication: Oesophageal ulcer
     Dosage: UNK, QD
     Route: 065
     Dates: start: 201501, end: 201801

REACTIONS (1)
  - Prostate cancer [Unknown]
